FAERS Safety Report 4668975-3 (Version None)
Quarter: 2005Q2

REPORT INFORMATION
  Report Type: 
  Country: None (occurrence: None)
  Receive Date: 20050523
  Receipt Date: 20050330
  Transmission Date: 20051028
  Serious: Yes (Hospitalization)
  Sender: FDA-Public Use
  Company Number: JP-GLAXOSMITHKLINE-B0376470A

PATIENT
  Age: 33 Year
  Sex: Male

DRUGS (9)
  1. LAMIVUDINE [Suspect]
     Indication: ACQUIRED IMMUNODEFICIENCY SYNDROME
     Route: 048
     Dates: start: 20030530
  2. ZERIT [Suspect]
     Indication: ACQUIRED IMMUNODEFICIENCY SYNDROME
     Route: 048
     Dates: start: 20030530, end: 20040228
  3. VIRACEPT [Suspect]
     Indication: ACQUIRED IMMUNODEFICIENCY SYNDROME
     Route: 048
     Dates: start: 20030917, end: 20040228
  4. KALETRA [Suspect]
     Indication: ACQUIRED IMMUNODEFICIENCY SYNDROME
     Route: 048
     Dates: start: 20030530
  5. COTRIM [Suspect]
     Indication: INFECTION PROPHYLAXIS
     Dosage: 1TAB PER DAY
     Route: 048
     Dates: start: 20030417
  6. DIFLUCAN [Suspect]
     Dosage: 100MG TWICE PER DAY
     Route: 042
     Dates: start: 20030530, end: 20030731
  7. CIPROXAN [Suspect]
     Dosage: 200MG THREE TIMES PER DAY
     Route: 042
     Dates: start: 20030530
  8. ZITHROMAC [Suspect]
     Indication: INFECTION PROPHYLAXIS
     Route: 048
     Dates: start: 20030602, end: 20030728
  9. PENTAMIDINE ISETHIONATE [Concomitant]
     Indication: INFECTION PROPHYLAXIS
     Dosage: 150MG IN THE MORNING
     Route: 042
     Dates: start: 20030819, end: 20030819

REACTIONS (7)
  - ABDOMINAL PAIN [None]
  - ANAEMIA [None]
  - ILEUS [None]
  - NAUSEA [None]
  - THROMBOCYTOPENIA [None]
  - VOMITING [None]
  - WHITE BLOOD CELL COUNT DECREASED [None]
